FAERS Safety Report 7133024-4 (Version None)
Quarter: 2010Q4

REPORT INFORMATION
  Report Type: 
  Country: None (occurrence: None)
  Receive Date: 20101202
  Receipt Date: 20101123
  Transmission Date: 20110411
  Serious: Yes (Other)
  Sender: FDA-Public Use
  Company Number: A0882089A

PATIENT
  Age: 55 Year
  Sex: Male

DRUGS (9)
  1. ADVAIR [Suspect]
     Indication: ASTHMA
     Dosage: 1PUFF TWICE PER DAY
     Route: 065
     Dates: start: 20080101, end: 20100701
  2. QVAR 40 [Suspect]
     Dates: start: 20100101
  3. SYMBICORT [Suspect]
     Dates: start: 20100101
  4. PAXIL [Concomitant]
  5. ATENOLOL [Concomitant]
  6. PROAIR HFA [Concomitant]
  7. MILK THISTLE [Concomitant]
  8. LOVAZA [Concomitant]
  9. SPIRIVA [Concomitant]
     Route: 065

REACTIONS (7)
  - APHASIA [None]
  - DRUG INEFFECTIVE [None]
  - DYSPNOEA [None]
  - LUNG INFECTION [None]
  - PULMONARY CONGESTION [None]
  - PYREXIA [None]
  - THERAPEUTIC RESPONSE DECREASED [None]
